FAERS Safety Report 8125893-6 (Version None)
Quarter: 2012Q1

REPORT INFORMATION
  Report Type: 
  Country: None (occurrence: None)
  Receive Date: 20120206
  Receipt Date: 20120126
  Transmission Date: 20120608
  Serious: Yes (Life-Threatening, Hospitalization, Other)
  Sender: FDA-Public Use
  Company Number: ADR-2012-00179

PATIENT
  Sex: Female

DRUGS (2)
  1. LIORESAL [Suspect]
     Indication: MUSCLE SPASTICITY
     Dosage: 236 MCG/FDAY
  2. LIORESAL [Suspect]
     Indication: CEREBROVASCULAR ACCIDENT
     Dosage: 236 MCG/FDAY

REACTIONS (11)
  - HYPERTONIA [None]
  - MALAISE [None]
  - WITHDRAWAL SYNDROME [None]
  - FALL [None]
  - DEVICE DISLOCATION [None]
  - MUSCLE SPASTICITY [None]
  - NASOPHARYNGITIS [None]
  - DEVICE KINK [None]
  - DYSURIA [None]
  - DEVICE BREAKAGE [None]
  - INSOMNIA [None]
